FAERS Safety Report 20552813 (Version 5)
Quarter: 2022Q2

REPORT INFORMATION
  Report Type: Report from Study
  Country: US (occurrence: US)
  Receive Date: 20220304
  Receipt Date: 20220530
  Transmission Date: 20220721
  Serious: Yes (Other)
  Sender: FDA-Public Use
  Company Number: US-TAKEDA-2022TUS014088

PATIENT
  Sex: Male

DRUGS (1)
  1. VEDOLIZUMAB [Suspect]
     Active Substance: VEDOLIZUMAB
     Indication: Colitis ulcerative
     Dosage: 300 MILLIGRAM, Q6WEEKS
     Route: 042

REACTIONS (7)
  - Autism spectrum disorder [Unknown]
  - Major depression [Unknown]
  - Rectal haemorrhage [Unknown]
  - Learning disability [Unknown]
  - Pain [Unknown]
  - Product dose omission issue [Unknown]
  - Off label use [Unknown]
